FAERS Safety Report 9624836 (Version 4)
Quarter: 2014Q1

REPORT INFORMATION
  Report Type: Spontaneous
  Country: JP (occurrence: JP)
  Receive Date: 20131015
  Receipt Date: 20140123
  Transmission Date: 20141002
  Serious: Yes (Death)
  Sender: FDA-Public Use
  Company Number: PHHY2013JP114899

PATIENT
  Sex: Male

DRUGS (5)
  1. CERTICAN [Suspect]
     Indication: RENAL TRANSPLANT
     Route: 048
  2. SIMULECT [Suspect]
     Indication: RENAL TRANSPLANT
     Route: 042
  3. CELLCEPT [Concomitant]
     Indication: RENAL TRANSPLANT
     Route: 048
  4. METHYLPREDNISOLONE [Concomitant]
     Indication: RENAL TRANSPLANT
  5. PROGRAF [Concomitant]
     Indication: RENAL TRANSPLANT
     Route: 048

REACTIONS (2)
  - Cardiac failure acute [Fatal]
  - Cardiac death [Fatal]
